FAERS Safety Report 5425634-7 (Version None)
Quarter: 2007Q3

REPORT INFORMATION
  Report Type: 
  Country: None (occurrence: None)
  Receive Date: 20070824
  Receipt Date: 20070814
  Transmission Date: 20080115
  Serious: Yes (Disabling, Other)
  Sender: FDA-Public Use
  Company Number: US-PFIZER INC-2007067843

PATIENT
  Sex: Male
  Weight: 65.909 kg

DRUGS (3)
  1. NARDIL [Suspect]
     Indication: DEPRESSION
  2. CITALOPRAM [Suspect]
     Indication: DEPRESSION
     Route: 048
     Dates: start: 20070401, end: 20070401
  3. VALIUM [Concomitant]

REACTIONS (6)
  - CHILLS [None]
  - DIZZINESS [None]
  - ENZYME ABNORMALITY [None]
  - LIVER DISORDER [None]
  - MUSCULAR WEAKNESS [None]
  - NAUSEA [None]
